FAERS Safety Report 15281804 (Version 1)
Quarter: 2018Q4

REPORT INFORMATION
  Report Type: Spontaneous
  Country: CH (occurrence: CH)
  Receive Date: 20180815
  Receipt Date: 20180815
  Transmission Date: 20190204
  Serious: Yes (Death, Other)
  Sender: FDA-Public Use
  Company Number: CH-PFIZER INC-2018320236

PATIENT

DRUGS (9)
  1. SORTIS [Suspect]
     Active Substance: ATORVASTATIN
     Dosage: 40 MG, 1X/DAY
     Route: 064
     Dates: end: 20180502
  2. REDORMIN (REMIFENTANIL HYDROCHLORIDE) [Suspect]
     Active Substance: REMIFENTANIL HYDROCHLORIDE
     Dosage: 250-500 MG AT BEDTIME, AS NEEDED
     Route: 064
  3. MAGNESIOCARD [Suspect]
     Active Substance: MAGNESIUM ASPARTATE HYDROCHLORIDE
     Dosage: 7.5 MMOL, 1X/DAY IN RESERVE
     Route: 064
  4. METFIN [Suspect]
     Active Substance: METFORMIN HYDROCHLORIDE
     Dosage: 1000 MG, 3X/DAY
     Route: 064
     Dates: end: 20180507
  5. LANTUS [Suspect]
     Active Substance: INSULIN GLARGINE
     Dosage: 56 IU, 1X/DAY
     Route: 064
  6. MONURIL [Suspect]
     Active Substance: FOSFOMYCIN TROMETHAMINE
     Indication: URINARY TRACT INFECTION
     Dosage: 1 UNIQUE DOSE ON 25APR2018; IN TOTAL
     Route: 064
     Dates: start: 20180425, end: 20180425
  7. VALVERDE [Suspect]
     Active Substance: HERBALS
     Dosage: 1 DF, AS NECESSARY
     Route: 064
  8. VICTOZA [Suspect]
     Active Substance: LIRAGLUTIDE
     Indication: TYPE 2 DIABETES MELLITUS
     Dosage: 1.8 MG, 1X/DAY
     Route: 064
     Dates: end: 20180507
  9. PANADOL [Suspect]
     Active Substance: ACETAMINOPHEN
     Dosage: 665 MG AS NECESSARY
     Route: 064

REACTIONS (2)
  - Maternal exposure during pregnancy [Recovered/Resolved]
  - Foetal chromosome abnormality [Fatal]

NARRATIVE: CASE EVENT DATE: 20180331
